FAERS Safety Report 8690418 (Version 2)
Quarter: 2014Q2

REPORT INFORMATION
  Report Type: Spontaneous
  Country: US (occurrence: US)
  Receive Date: 20120727
  Receipt Date: 20140521
  Transmission Date: 20141212
  Serious: No
  Sender: FDA-Public Use
  Company Number: US-ASTRAZENECA-2012SE20409

PATIENT
  Age: 41 Year
  Sex: Female

DRUGS (7)
  1. SEROQUEL [Suspect]
     Indication: PSYCHOTIC DISORDER
     Route: 048
  2. SEROQUEL [Suspect]
     Indication: PSYCHOTIC DISORDER
     Route: 048
  3. SEROQUEL [Suspect]
     Indication: PSYCHOTIC DISORDER
     Route: 048
     Dates: start: 2011
  4. SEROQUEL [Suspect]
     Indication: PSYCHOTIC DISORDER
     Dosage: SPLITTING 200 MG TABLET
     Route: 048
  5. LEVOTHYROXINE [Concomitant]
     Indication: THYROID DISORDER
     Route: 048
     Dates: start: 2011
  6. LITHIUM [Concomitant]
     Indication: BIPOLAR DISORDER
     Route: 048
     Dates: start: 2001
  7. LITHIUM [Concomitant]
     Indication: BIPOLAR DISORDER
     Route: 048
     Dates: start: 2001

REACTIONS (7)
  - Malaise [Unknown]
  - Somnolence [Unknown]
  - Constipation [Unknown]
  - Fatigue [Recovered/Resolved]
  - Vomiting [Recovered/Resolved]
  - Off label use [Unknown]
  - Intentional product misuse [Unknown]
